FAERS Safety Report 17477660 (Version 1)
Quarter: 2020Q1

REPORT INFORMATION
  Report Type: Spontaneous
  Country: DK (occurrence: DK)
  Receive Date: 20200229
  Receipt Date: 20200229
  Transmission Date: 20200409
  Serious: Yes (Life-Threatening, Hospitalization)
  Sender: FDA-Public Use
  Company Number: DK-B.I. PHARMACEUTICALS,INC./RIDGEFIELD-2020-12-011303

PATIENT
  Age: 48 Year
  Sex: Female

DRUGS (5)
  1. PARACETAMOL [Concomitant]
     Active Substance: ACETAMINOPHEN
     Indication: PAIN
     Dosage: STYRKE: 500 MG.; AS REQUIRED
     Route: 048
     Dates: start: 20170111
  2. JARDIANCE [Suspect]
     Active Substance: EMPAGLIFLOZIN
     Indication: TYPE 2 DIABETES MELLITUS
     Dosage: STYRKE: 25 MG
     Route: 048
     Dates: start: 20200107, end: 20200117
  3. ELTROXIN [Concomitant]
     Active Substance: LEVOTHYROXINE
     Indication: MYXOEDEMA
     Dosage: STYRKE: 1 TABL DAGLIG DOG 2 TABL. MANDAG OG TORSDAG. STYRKE: 100 MICROGRAM.
     Route: 048
     Dates: start: 20150413
  4. METFORMIN ACTAVIS [Concomitant]
     Active Substance: METFORMIN HYDROCHLORIDE
     Indication: TYPE 2 DIABETES MELLITUS
     Dosage: STYRKE: 1000 MG.
     Route: 048
     Dates: start: 20200107, end: 20200117
  5. FERROUS FUMARATE [Concomitant]
     Active Substance: FERROUS FUMARATE
     Indication: IRON DEFICIENCY
     Dosage: STYRKE: UKENDT.
     Route: 048
     Dates: start: 20160114

REACTIONS (5)
  - Hyperhidrosis [Unknown]
  - Ketoacidosis [Recovered/Resolved]
  - Vomiting [Unknown]
  - Abdominal pain [Recovered/Resolved]
  - Hyperventilation [Recovered/Resolved]

NARRATIVE: CASE EVENT DATE: 202001
